FAERS Safety Report 10027846 (Version 1)
Quarter: 2014Q1

REPORT INFORMATION
  Report Type: Spontaneous
  Country: DE (occurrence: DE)
  Receive Date: 20140321
  Receipt Date: 20140321
  Transmission Date: 20141002
  Serious: Yes (Other)
  Sender: FDA-Public Use
  Company Number: DE-JNJFOC-20140310459

PATIENT
  Sex: Female
  Weight: 64 kg

DRUGS (6)
  1. XARELTO [Suspect]
     Indication: CEREBROVASCULAR ACCIDENT PROPHYLAXIS
     Route: 048
  2. XARELTO [Suspect]
     Indication: ATRIAL FIBRILLATION
     Route: 048
  3. SIMVASTATIN [Concomitant]
     Route: 065
  4. LOSARTAN [Concomitant]
     Route: 065
  5. DIGITOXIN [Concomitant]
     Route: 065
  6. VERAPAMIL [Concomitant]
     Route: 065

REACTIONS (2)
  - Pulmonary embolism [Unknown]
  - Weight decreased [Not Recovered/Not Resolved]
